FAERS Safety Report 7057067-4 (Version None)
Quarter: 2010Q4

REPORT INFORMATION
  Report Type: 
  Country: None (occurrence: None)
  Receive Date: 20101022
  Receipt Date: 20101013
  Transmission Date: 20110411
  Serious: Yes (Other)
  Sender: FDA-Public Use
  Company Number: US-BAYER-201042506GPV

PATIENT
  Age: 55 Year
  Sex: Female

DRUGS (3)
  1. ESTRADIOL [Suspect]
     Indication: PRODUCT USED FOR UNKNOWN INDICATION
  2. PROGESTERONE [Concomitant]
  3. TESTOSTERONE [Concomitant]

REACTIONS (2)
  - PSEUDOLYMPHOMA [None]
  - RASH PAPULAR [None]
